FAERS Safety Report 25931523 (Version 1)
Quarter: 2025Q4

REPORT INFORMATION
  Report Type: Spontaneous
  Country: CA (occurrence: CA)
  Receive Date: 20251016
  Receipt Date: 20251016
  Transmission Date: 20260117
  Serious: No
  Sender: MISSION PHARMACAL COMPANY
  Company Number: CA-Mission Pharmacal Company-2186719

PATIENT
  Sex: Male

DRUGS (1)
  1. UROCIT-K [Suspect]
     Active Substance: POTASSIUM CITRATE
     Indication: Calculus bladder

REACTIONS (5)
  - Bladder disorder [Recovered/Resolved]
  - Intentional product use issue [Recovered/Resolved]
  - Haemorrhage urinary tract [Recovered/Resolved]
  - Dyspepsia [Recovered/Resolved]
  - Cystitis noninfective [Recovered/Resolved]
